FAERS Safety Report 4296746-9 (Version None)
Quarter: 2004Q1

REPORT INFORMATION
  Report Type: 
  Country: None (occurrence: None)
  Receive Date: 20040126
  Receipt Date: 20030909
  Transmission Date: 20041129
  Serious: No
  Sender: FDA-Public Use
  Company Number: USA030946707

PATIENT
  Age: 49 Year
  Sex: Male

DRUGS (4)
  1. STRATTERA [Suspect]
     Indication: ATTENTION DEFICIT/HYPERACTIVITY DISORDER
     Dosage: 60 MG/DAY
     Dates: start: 20030701
  2. CYLERT [Concomitant]
  3. LIPITOR [Concomitant]
  4. REMERON [Concomitant]

REACTIONS (3)
  - DRY SKIN [None]
  - RASH [None]
  - TINEA CRURIS [None]
